FAERS Safety Report 5375581-4 (Version None)
Quarter: 2007Q2

REPORT INFORMATION
  Report Type: 
  Country: None (occurrence: None)
  Receive Date: 20070627
  Receipt Date: 20070611
  Transmission Date: 20071010
  Serious: Yes (Hospitalization)
  Sender: FDA-Public Use
  Company Number: 2007BI004453

PATIENT
  Sex: Female

DRUGS (4)
  1. AVONEX [Suspect]
     Indication: MULTIPLE SCLEROSIS
     Dosage: ; IM
     Route: 030
     Dates: start: 20060711
  2. OLANZAPINE [Concomitant]
  3. DIAZEPAM [Concomitant]
  4. INDOMETHACIN [Concomitant]

REACTIONS (2)
  - APPENDICECTOMY [None]
  - DRUG DOSE OMISSION [None]
